APPROVED DRUG PRODUCT: METHYLPHENIDATE HYDROCHLORIDE
Active Ingredient: METHYLPHENIDATE HYDROCHLORIDE
Strength: 20MG
Dosage Form/Route: TABLET, EXTENDED RELEASE;ORAL
Application: A076032 | Product #001
Applicant: ABLE LABORATORIES INC
Approved: May 9, 2001 | RLD: No | RS: No | Type: DISCN